FAERS Safety Report 9338347 (Version 1)
Quarter: 2013Q2

REPORT INFORMATION
  Report Type: Spontaneous
  Country: US (occurrence: US)
  Receive Date: 20130610
  Receipt Date: 20130610
  Transmission Date: 20140414
  Serious: No
  Sender: FDA-Public Use
  Company Number: US-PFIZER INC-2013171872

PATIENT
  Sex: Female

DRUGS (5)
  1. MORPHINE SULFATE [Suspect]
     Dosage: UNK
  2. ZOLOFT [Suspect]
     Dosage: UNK
  3. WELLBUTRIN [Suspect]
     Dosage: UNK
  4. KEFLEX [Suspect]
     Dosage: UNK
  5. PAXIL [Suspect]
     Dosage: UNK

REACTIONS (1)
  - Drug hypersensitivity [Unknown]
